FAERS Safety Report 25653208 (Version 1)
Quarter: 2025Q3

REPORT INFORMATION
  Report Type: Spontaneous
  Country: CA (occurrence: CA)
  Receive Date: 20250807
  Receipt Date: 20250807
  Transmission Date: 20251020
  Serious: Yes (Other)
  Sender: SANDOZ
  Company Number: CA-SANDOZ-SDZ2025CA056072

PATIENT
  Age: 45 Year
  Sex: Female

DRUGS (4)
  1. AMOXICILLIN [Suspect]
     Active Substance: AMOXICILLIN
     Indication: Helicobacter infection
     Dosage: 1000 MG, BID
     Route: 048
  2. CLARITHROMYCIN [Suspect]
     Active Substance: CLARITHROMYCIN
     Indication: Helicobacter infection
     Dosage: 500 MG, BID
     Route: 048
  3. METRONIDAZOLE [Suspect]
     Active Substance: METRONIDAZOLE
     Indication: Helicobacter infection
     Dosage: 500 MG, BID
     Route: 048
  4. PANTOPRAZOLE [Suspect]
     Active Substance: PANTOPRAZOLE
     Indication: Helicobacter infection
     Dosage: 40 MG, BID
     Route: 048

REACTIONS (10)
  - Tongue blistering [Unknown]
  - Candida infection [Unknown]
  - Dysphagia [Unknown]
  - Taste disorder [Unknown]
  - Throat irritation [Unknown]
  - Vision blurred [Unknown]
  - Dysphonia [Unknown]
  - Dysgeusia [Unknown]
  - Chest pain [Unknown]
  - Hypersensitivity [Unknown]
